FAERS Safety Report 4571559-9 (Version None)
Quarter: 2005Q1

REPORT INFORMATION
  Report Type: 
  Country: None (occurrence: None)
  Receive Date: 20050203
  Receipt Date: 20050203
  Transmission Date: 20050727
  Serious: No
  Sender: FDA-Public Use
  Company Number: None

PATIENT
  Age: 62 Year
  Sex: Female
  Weight: 81.6475 kg

DRUGS (1)
  1. REMERON [Suspect]
     Dosage: 45 MG PO Q HS
     Route: 048
     Dates: start: 20000301

REACTIONS (5)
  - DEHYDRATION [None]
  - FALL [None]
  - PHARMACEUTICAL PRODUCT COMPLAINT [None]
  - SYNCOPE [None]
  - VOMITING PROJECTILE [None]
